FAERS Safety Report 5232224-8 (Version None)
Quarter: 2007Q1

REPORT INFORMATION
  Report Type: 
  Country: None (occurrence: None)
  Receive Date: 20070207
  Receipt Date: 20070129
  Transmission Date: 20070707
  Serious: Yes (Hospitalization)
  Sender: FDA-Public Use
  Company Number: PHRM2007FR00459

PATIENT
  Age: 75 Year
  Sex: Male

DRUGS (5)
  1. AREDIA [Suspect]
     Dosage: SEVERAL COURSES
     Route: 042
     Dates: start: 20040101
  2. FOSAMAX [Suspect]
     Indication: RHEUMATOID ARTHRITIS
     Dosage: 70 MG, QW
     Route: 048
     Dates: start: 20050616, end: 20061015
  3. FOSAMAX [Suspect]
     Dosage: 1 DF, QD
     Route: 048
     Dates: start: 20020615, end: 20050615
  4. METHOTREXATE [Concomitant]
     Indication: RHEUMATOID ARTHRITIS
     Dosage: 3 DF QW
     Route: 048
  5. CORTANCYL [Concomitant]
     Dosage: 5 MG, QD
     Route: 048

REACTIONS (6)
  - COMPUTERISED TOMOGRAM ABNORMAL [None]
  - GRANULOMA [None]
  - LYMPH NODES SCAN ABNORMAL [None]
  - LYMPHADENOPATHY [None]
  - OSTEOLYSIS [None]
  - PAIN IN JAW [None]
